FAERS Safety Report 7278128-0 (Version None)
Quarter: 2011Q1

REPORT INFORMATION
  Report Type: 
  Country: None (occurrence: None)
  Receive Date: 20110207
  Receipt Date: 20110203
  Transmission Date: 20110831
  Serious: Yes (Death, Hospitalization)
  Sender: FDA-Public Use
  Company Number: A0788674A

PATIENT
  Age: 32 Year
  Sex: Male
  Weight: 109.1 kg

DRUGS (2)
  1. AVANDIA [Suspect]
     Dosage: 8MG PER DAY
     Dates: start: 20001030, end: 20030714
  2. INSULIN [Concomitant]
     Dates: start: 19790101, end: 20030701

REACTIONS (2)
  - RENAL FAILURE [None]
  - CARDIAC ARREST [None]
